FAERS Safety Report 5298409-X (Version None)
Quarter: 2007Q2

REPORT INFORMATION
  Report Type: 
  Country: None (occurrence: None)
  Receive Date: 20070409
  Receipt Date: 20070403
  Transmission Date: 20071010
  Serious: Yes (Other)
  Sender: FDA-Public Use
  Company Number: THQ2007A00268

PATIENT
  Age: 58 Year
  Sex: Female

DRUGS (2)
  1. ACTOS [Suspect]
     Indication: DIABETES MELLITUS
     Dosage: PER ORAL
     Route: 048
     Dates: start: 20050101
  2. INSULIN [Concomitant]

REACTIONS (3)
  - ANKLE FRACTURE [None]
  - FOOT FRACTURE [None]
  - OSTEOPENIA [None]
